FAERS Safety Report 9650991 (Version 2)
Quarter: 2013Q4

REPORT INFORMATION
  Report Type: Spontaneous
  Country: US (occurrence: US)
  Receive Date: 20131029
  Receipt Date: 20131106
  Transmission Date: 20140711
  Serious: No
  Sender: FDA-Public Use
  Company Number: PHEH2013US022446

PATIENT
  Sex: Female

DRUGS (9)
  1. EXELON [Suspect]
     Dosage: 2 MG, TID
  2. EXELON [Suspect]
     Dosage: 6 MG, BID
  3. TOLTERODINE [Concomitant]
     Dosage: UNK UKN, UNK
  4. SOTALOL [Concomitant]
     Dosage: UNK UKN, UNK
  5. SERTRALINE [Concomitant]
     Dosage: UNK UKN, UNK
  6. PANTOPRAZOLE [Concomitant]
     Dosage: UNK UKN, UNK
  7. HYDROCODONE BITARTRATE AND ACETAMINOPHEN [Concomitant]
     Dosage: 10 MG, UNK
  8. TARTARIC ACID [Concomitant]
     Dosage: UNK UKN, UNK
  9. MULTIVITAMIN//VITAMINS NOS [Concomitant]
     Dosage: UNK UKN, UNK

REACTIONS (3)
  - Herpes zoster [Unknown]
  - Cardiac disorder [Unknown]
  - Osteoarthritis [Unknown]
